FAERS Safety Report 5286370-3 (Version None)
Quarter: 2007Q2

REPORT INFORMATION
  Report Type: 
  Country: None (occurrence: None)
  Receive Date: 20070404
  Receipt Date: 20070327
  Transmission Date: 20071010
  Serious: Yes (Other)
  Sender: FDA-Public Use
  Company Number: 2007AP01353

PATIENT
  Age: 27321 Day
  Sex: Female
  Weight: 55.1 kg

DRUGS (26)
  1. DIPRIVAN [Suspect]
     Indication: INDUCTION AND MAINTENANCE OF ANAESTHESIA
     Route: 042
     Dates: start: 20070214, end: 20070214
  2. DIPRIVAN [Suspect]
     Indication: SEDATIVE THERAPY
     Route: 042
     Dates: start: 20070214, end: 20070214
  3. DIPRIVAN [Suspect]
     Route: 042
     Dates: start: 20070214, end: 20070214
  4. DIPRIVAN [Suspect]
     Route: 042
     Dates: start: 20070214, end: 20070214
  5. DIPRIVAN [Suspect]
     Route: 042
     Dates: start: 20070214, end: 20070214
  6. DIPRIVAN [Suspect]
     Route: 042
     Dates: start: 20070214, end: 20070214
  7. DIPRIVAN [Suspect]
     Route: 042
     Dates: start: 20070215, end: 20070215
  8. DIPRIVAN [Suspect]
     Route: 042
     Dates: start: 20070215, end: 20070215
  9. DIPRIVAN [Suspect]
     Route: 042
     Dates: start: 20070215, end: 20070215
  10. DIPRIVAN [Suspect]
     Route: 042
     Dates: start: 20070215, end: 20070215
  11. DIPRIVAN [Suspect]
     Route: 042
     Dates: start: 20070215, end: 20070215
  12. DIPRIVAN [Suspect]
     Route: 042
     Dates: start: 20070215, end: 20070215
  13. ULTIVA [Concomitant]
     Indication: ANALGESIC THERAPY
     Route: 042
     Dates: start: 20070214, end: 20070214
  14. MUSCULAX [Concomitant]
     Indication: MUSCLE RELAXANT THERAPY
     Route: 042
     Dates: start: 20070214, end: 20070214
  15. ROPION [Concomitant]
     Indication: ANALGESIC THERAPY
     Dates: start: 20070214
  16. FARESTON [Concomitant]
     Indication: BREAST CANCER
     Route: 048
     Dates: start: 20040921
  17. PRORENAL [Concomitant]
     Indication: LUMBAR SPINAL STENOSIS
     Route: 048
  18. ATROPINE [Concomitant]
     Indication: BRADYCARDIA
     Route: 042
     Dates: start: 20070214, end: 20070214
  19. PERDIPINE [Concomitant]
     Indication: BLOOD PRESSURE INCREASED
     Route: 042
     Dates: start: 20070214, end: 20070214
  20. EPHEDRIN [Concomitant]
     Indication: BLOOD PRESSURE DECREASED
     Route: 042
     Dates: start: 20070214, end: 20070214
  21. INOVAN [Concomitant]
     Indication: BLOOD PRESSURE DECREASED
     Route: 042
     Dates: start: 20070214, end: 20070214
  22. INOVAN [Concomitant]
     Indication: POLYURIA
     Route: 042
     Dates: start: 20070214, end: 20070214
  23. INOVAN [Concomitant]
     Route: 042
     Dates: start: 20070215, end: 20070215
  24. INOVAN [Concomitant]
     Route: 042
     Dates: start: 20070215, end: 20070215
  25. XYLOCAINE W/ EPINEPHRINE [Concomitant]
     Indication: INFILTRATION ANAESTHESIA
     Dates: start: 20070214, end: 20070214
  26. CHEMOTHERAPY [Concomitant]

REACTIONS (1)
  - BUNDLE BRANCH BLOCK LEFT [None]
